FAERS Safety Report 18960357 (Version 2)
Quarter: 2021Q2

REPORT INFORMATION
  Report Type: Spontaneous
  Country: US (occurrence: US)
  Receive Date: 20210302
  Receipt Date: 20210607
  Transmission Date: 20210717
  Serious: No
  Sender: FDA-Public Use
  Company Number: US-PFIZER INC-2021204667

PATIENT
  Age: 62 Year
  Sex: Female

DRUGS (5)
  1. IBRANCE [Suspect]
     Active Substance: PALBOCICLIB
     Dosage: 125 MG
     Dates: start: 20210222
  2. IBRANCE [Suspect]
     Active Substance: PALBOCICLIB
     Dosage: 125 MG
     Dates: start: 20210301
  3. IBRANCE [Suspect]
     Active Substance: PALBOCICLIB
     Dosage: 125 MG
     Dates: start: 20210213
  4. IBRANCE [Suspect]
     Active Substance: PALBOCICLIB
     Dosage: 125 MG
     Dates: start: 20210215
  5. IBRANCE [Suspect]
     Active Substance: PALBOCICLIB
     Dosage: 125 MG
     Dates: start: 20210310

REACTIONS (9)
  - Fatigue [Recovered/Resolved]
  - Insomnia [Unknown]
  - Diarrhoea [Unknown]
  - White blood cell count decreased [Unknown]
  - Arthralgia [Recovered/Resolved]
  - Epistaxis [Recovered/Resolved]
  - Energy increased [Unknown]
  - Decreased appetite [Recovered/Resolved]
  - Nausea [Unknown]
